FAERS Safety Report 23308944 (Version 1)
Quarter: 2023Q4

REPORT INFORMATION
  Report Type: Spontaneous
  Country: US (occurrence: None)
  Receive Date: 20231216
  Receipt Date: 20231216
  Transmission Date: 20240109
  Serious: Yes (Disabling)
  Sender: FDA-Public Use
  Company Number: None

PATIENT
  Age: 37 Year
  Sex: Male
  Weight: 108 kg

DRUGS (1)
  1. CIPROFLOXACIN [Suspect]
     Active Substance: CIPROFLOXACIN
     Indication: Bacterial prostatitis
     Dosage: OTHER QUANTITY : 60 TABLET(S);?FREQUENCY : TWICE A DAY;?
     Route: 048
     Dates: start: 20180112, end: 20180211

REACTIONS (9)
  - Arthritis [None]
  - Costochondritis [None]
  - Tendonitis [None]
  - Bursitis [None]
  - Neuralgia [None]
  - Muscular weakness [None]
  - Urinary tract disorder [None]
  - Gastrointestinal disorder [None]
  - Quality of life decreased [None]

NARRATIVE: CASE EVENT DATE: 20180112
